FAERS Safety Report 8036834-4 (Version None)
Quarter: 2012Q1

REPORT INFORMATION
  Report Type: 
  Country: None (occurrence: None)
  Receive Date: 20120111
  Receipt Date: 20120106
  Transmission Date: 20120608
  Serious: No
  Sender: FDA-Public Use
  Company Number: US-PFIZER INC-2012004577

PATIENT
  Sex: Female

DRUGS (8)
  1. NORVASC [Suspect]
     Dosage: UNK
  2. QUINAPRIL HCL [Suspect]
     Dosage: UNK
  3. ALISKIREN [Suspect]
     Dosage: UNK
  4. BENICAR [Suspect]
     Dosage: UNK
  5. METOPROLOL TARTRATE [Suspect]
  6. LOSARTAN POTASSIUM [Suspect]
     Dosage: UNK
  7. COZAAR [Suspect]
     Dosage: UNK
  8. CARVEDILOL [Suspect]
     Dosage: UNK

REACTIONS (1)
  - DRUG INEFFECTIVE [None]
